FAERS Safety Report 11107424 (Version 8)
Quarter: 2017Q4

REPORT INFORMATION
  Report Type: Report from Study
  Country: US (occurrence: US)
  Receive Date: 20150512
  Receipt Date: 20171219
  Transmission Date: 20180320
  Serious: Yes (Other)
  Sender: FDA-Public Use
  Company Number: US-SA-2015SA039361

PATIENT
  Age: 54 Year
  Sex: Female

DRUGS (9)
  1. AUBAGIO [Suspect]
     Active Substance: TERIFLUNOMIDE
     Indication: MULTIPLE SCLEROSIS
     Route: 048
     Dates: start: 20170329, end: 20171129
  2. TYSABRI [Concomitant]
     Active Substance: NATALIZUMAB
     Dates: start: 2014
  3. AUBAGIO [Suspect]
     Active Substance: TERIFLUNOMIDE
     Indication: MULTIPLE SCLEROSIS
     Route: 048
     Dates: start: 20150315, end: 20150401
  4. TECFIDERA [Concomitant]
     Active Substance: DIMETHYL FUMARATE
     Dates: start: 2014
  5. AUBAGIO [Suspect]
     Active Substance: TERIFLUNOMIDE
     Indication: MULTIPLE SCLEROSIS
     Route: 048
     Dates: end: 20150601
  6. TECFIDERA [Concomitant]
     Active Substance: DIMETHYL FUMARATE
     Dates: start: 2014
  7. AUBAGIO [Suspect]
     Active Substance: TERIFLUNOMIDE
     Indication: MULTIPLE SCLEROSIS
     Route: 048
     Dates: start: 20170329, end: 20171129
  8. TYLENOL [Concomitant]
     Active Substance: ACETAMINOPHEN
  9. AUBAGIO [Suspect]
     Active Substance: TERIFLUNOMIDE
     Indication: MULTIPLE SCLEROSIS
     Route: 048
     Dates: start: 20170329, end: 20171129

REACTIONS (16)
  - Oropharyngeal pain [Recovering/Resolving]
  - Chest pain [Recovering/Resolving]
  - Malaise [Recovering/Resolving]
  - Myalgia [Recovering/Resolving]
  - Alopecia [Recovering/Resolving]
  - Ear pain [Recovering/Resolving]
  - Headache [Recovered/Resolved]
  - Sinusitis [Recovering/Resolving]
  - Nausea [Recovered/Resolved]
  - Dysphagia [Recovering/Resolving]
  - Vomiting [Recovering/Resolving]
  - Joint swelling [Recovering/Resolving]
  - Pneumonia [Recovering/Resolving]
  - Abdominal discomfort [Recovered/Resolved]
  - Pulmonary congestion [Recovering/Resolving]
  - Pruritus [Recovering/Resolving]

NARRATIVE: CASE EVENT DATE: 2015
